FAERS Safety Report 5624703-6 (Version None)
Quarter: 2008Q1

REPORT INFORMATION
  Report Type: 
  Country: None (occurrence: None)
  Receive Date: 20080213
  Receipt Date: 20080204
  Transmission Date: 20080703
  Serious: Yes (Hospitalization)
  Sender: FDA-Public Use
  Company Number: B0507245A

PATIENT
  Age: 61 Year
  Sex: Male

DRUGS (2)
  1. ARIXTRA [Suspect]
     Indication: PULMONARY EMBOLISM
     Dosage: 7.5MG PER DAY
     Route: 058
     Dates: start: 20071203, end: 20071204
  2. ZOCOR [Concomitant]
     Dosage: 5MG PER DAY
     Route: 048

REACTIONS (3)
  - ERYTHEMA [None]
  - FACE OEDEMA [None]
  - HOT FLUSH [None]
